FAERS Safety Report 8445239-3 (Version None)
Quarter: 2012Q2

REPORT INFORMATION
  Report Type: 
  Country: None (occurrence: None)
  Receive Date: 20120605
  Receipt Date: 20120528
  Transmission Date: 20120825
  Serious: Yes (Hospitalization)
  Sender: FDA-Public Use
  Company Number: 2012SP018282

PATIENT
  Age: 55 Year
  Sex: Female
  Weight: 65 kg

DRUGS (13)
  1. TELAVIC (ANTIVIRALS NOS) [Suspect]
     Indication: HEPATITIS C
     Dosage: 1500 MG;QD;PO, 1500 MG;QD;PO, 750 MG;QD;PO
     Route: 048
     Dates: start: 20120207, end: 20120320
  2. TELAVIC (ANTIVIRALS NOS) [Suspect]
     Indication: HEPATITIS C
     Dosage: 1500 MG;QD;PO, 1500 MG;QD;PO, 750 MG;QD;PO
     Route: 048
     Dates: start: 20120403, end: 20120423
  3. RABEPRAZOLE SODIUM [Concomitant]
  4. PEG-INTRON [Suspect]
     Indication: HEPATITIS C
     Dosage: 1.5 MCG/KG;QW;SC, 1.5 MCG/KG;QW;SC, 100 MCG;UNK;SC
     Route: 058
     Dates: start: 20120329
  5. PEG-INTRON [Suspect]
     Indication: HEPATITIS C
     Dosage: 1.5 MCG/KG;QW;SC, 1.5 MCG/KG;QW;SC, 100 MCG;UNK;SC
     Route: 058
     Dates: start: 20120207, end: 20120313
  6. PEG-INTRON [Suspect]
     Indication: HEPATITIS C
     Dosage: 1.5 MCG/KG;QW;SC, 1.5 MCG/KG;QW;SC, 100 MCG;UNK;SC
     Route: 058
     Dates: start: 20120403
  7. LOXONIN [Concomitant]
  8. CANDESARTAN CILEXETIL [Concomitant]
  9. MUCOSTA [Concomitant]
  10. POTASSIUM CHLORIDE [Concomitant]
  11. REBETOL [Suspect]
     Indication: HEPATITIS C
     Dosage: 400 MG;QD;PO, 200 MG;QD;PO, 200 MG;QD;PO
     Route: 048
     Dates: start: 20120207, end: 20120305
  12. REBETOL [Suspect]
     Indication: HEPATITIS C
     Dosage: 400 MG;QD;PO, 200 MG;QD;PO, 200 MG;QD;PO
     Route: 048
     Dates: start: 20120306, end: 20120320
  13. VEEN-F [Concomitant]

REACTIONS (6)
  - URINARY TRACT INFECTION [None]
  - MALAISE [None]
  - HEADACHE [None]
  - HAEMOGLOBIN DECREASED [None]
  - DECREASED APPETITE [None]
  - PYELONEPHRITIS [None]
